FAERS Safety Report 15335561 (Version 1)
Quarter: 2018Q3

REPORT INFORMATION
  Report Type: Spontaneous
  Country: US (occurrence: US)
  Receive Date: 20180827
  Receipt Date: 20180827
  Transmission Date: 20181010
  Serious: No
  Sender: FDA-Public Use
  Company Number: None

PATIENT
  Age: 38 Year
  Sex: Female

DRUGS (1)
  1. ORENCIA [Suspect]
     Active Substance: ABATACEPT
     Indication: RHEUMATOID ARTHRITIS
     Dates: start: 20160211, end: 20180817

REACTIONS (3)
  - Drug effect decreased [None]
  - Rheumatoid arthritis [None]
  - Disease recurrence [None]

NARRATIVE: CASE EVENT DATE: 20180817
